FAERS Safety Report 14038399 (Version 1)
Quarter: 2017Q4

REPORT INFORMATION
  Report Type: Spontaneous
  Country: DK (occurrence: DK)
  Receive Date: 20171004
  Receipt Date: 20171004
  Transmission Date: 20180321
  Serious: Yes (Hospitalization)
  Sender: FDA-Public Use
  Company Number: DK-PFIZER INC-2017424729

PATIENT
  Age: 33 Year
  Sex: Female

DRUGS (3)
  1. CYTOTEC [Suspect]
     Active Substance: MISOPROSTOL
     Indication: ABORTION INDUCED
     Dosage: 0.4 MG, SINGLE
     Route: 048
     Dates: start: 20170906, end: 20170906
  2. PANODIL [Concomitant]
     Active Substance: ACETAMINOPHEN
     Dosage: UNK
     Route: 048
     Dates: start: 20170906, end: 20170906
  3. IBUPROFEN. [Concomitant]
     Active Substance: IBUPROFEN
     Dosage: UNK
     Route: 048
     Dates: start: 20170906, end: 20170906

REACTIONS (4)
  - Swollen tongue [Recovered/Resolved]
  - Urticaria [Recovered/Resolved]
  - Pharyngeal oedema [Recovered/Resolved]
  - Product use in unapproved indication [Unknown]

NARRATIVE: CASE EVENT DATE: 20170906
